FAERS Safety Report 9287160 (Version 1)
Quarter: 2013Q2

REPORT INFORMATION
  Report Type: Spontaneous
  Country: DK (occurrence: DK)
  Receive Date: 20130513
  Receipt Date: 20130513
  Transmission Date: 20140414
  Serious: Yes (Other)
  Sender: FDA-Public Use
  Company Number: DK-009507513-1305DNK003593

PATIENT
  Age: 51 Year
  Sex: Female
  Weight: 75 kg

DRUGS (2)
  1. FOSAMAX UGETABLET [Suspect]
     Indication: OSTEOPENIA
     Dosage: STYRKE: 70 MG
     Route: 048
     Dates: start: 20130302, end: 20130317
  2. PREDNISOLON [Concomitant]
     Indication: TEMPORAL ARTERITIS
     Dates: start: 200710

REACTIONS (10)
  - Local swelling [Recovering/Resolving]
  - Hypersensitivity [Recovering/Resolving]
  - Face oedema [Recovering/Resolving]
  - Oedema mouth [Recovering/Resolving]
  - Laryngeal oedema [Recovering/Resolving]
  - Abdominal distension [Recovering/Resolving]
  - Confusional state [Recovering/Resolving]
  - Insomnia [Recovering/Resolving]
  - Pharyngeal oedema [Recovering/Resolving]
  - Local swelling [Recovering/Resolving]
